FAERS Safety Report 12080420 (Version 1)
Quarter: 2016Q1

REPORT INFORMATION
  Report Type: Spontaneous
  Country: US (occurrence: US)
  Receive Date: 20160216
  Receipt Date: 20160216
  Transmission Date: 20160526
  Serious: No
  Sender: FDA-Public Use
  Company Number: US-009507513-1602USA006382

PATIENT
  Age: 26 Year
  Sex: Female

DRUGS (1)
  1. NEXPLANON [Suspect]
     Active Substance: ETONOGESTREL
     Indication: CONTRACEPTION
     Dosage: 68 MG / 1 IMPLANT EVERY 3 YEARS
     Route: 059
     Dates: start: 20160128

REACTIONS (3)
  - Implant site pruritus [Recovering/Resolving]
  - Implant site swelling [Recovering/Resolving]
  - Implant site erythema [Recovering/Resolving]

NARRATIVE: CASE EVENT DATE: 2016
